FAERS Safety Report 6230467-8 (Version None)
Quarter: 2009Q2

REPORT INFORMATION
  Report Type: 
  Country: None (occurrence: None)
  Receive Date: 20090611
  Receipt Date: 20090602
  Transmission Date: 20091009
  Serious: Yes (Other)
  Sender: FDA-Public Use
  Company Number: 2009AP002228

PATIENT
  Age: 50 Year
  Sex: Female

DRUGS (7)
  1. ZOLPIDEM TARTRATE [Suspect]
     Indication: SLEEP DISORDER
     Dosage: PO
     Route: 048
     Dates: start: 20090427
  2. GABAPENTIN [Concomitant]
  3. BUPROPION HYDROCHLORIDE [Concomitant]
  4. LISINOPRIL [Concomitant]
  5. HYDROCHLOROTHIAZDE TAB [Concomitant]
  6. ANASTROZOLE [Concomitant]
  7. GABAPENTIN [Concomitant]

REACTIONS (2)
  - COGNITIVE DISORDER [None]
  - MEMORY IMPAIRMENT [None]
